APPROVED DRUG PRODUCT: METOPROLOL TARTRATE AND HYDROCHLOROTHIAZIDE
Active Ingredient: HYDROCHLOROTHIAZIDE; METOPROLOL TARTRATE
Strength: 25MG;50MG
Dosage Form/Route: TABLET;ORAL
Application: A215789 | Product #001 | TE Code: AB
Applicant: SENORES PHARMACEUTICALS INC
Approved: Jan 8, 2025 | RLD: No | RS: No | Type: RX